FAERS Safety Report 6301355-3 (Version None)
Quarter: 2009Q3

REPORT INFORMATION
  Report Type: 
  Country: None (occurrence: None)
  Receive Date: 20090807
  Receipt Date: 20090706
  Transmission Date: 20100115
  Serious: No
  Sender: FDA-Public Use
  Company Number: US-BAYER-200912227BCC

PATIENT
  Age: 77 Year
  Sex: Male
  Weight: 79 kg

DRUGS (8)
  1. ALEVE [Suspect]
     Indication: SCIATICA
     Dosage: TOTAL DAILY DOSE: 1980 MG  UNIT DOSE: 220 MG
     Route: 048
     Dates: start: 20060113, end: 20060129
  2. LIPITOR [Concomitant]
     Route: 065
     Dates: end: 20060129
  3. COREG [Concomitant]
     Route: 065
  4. AMLODIPINE BESYLATE [Concomitant]
     Route: 065
  5. PRILOSEC [Concomitant]
     Route: 065
  6. BENADRYL [Concomitant]
     Route: 065
  7. NASONEX [Concomitant]
     Route: 065
  8. CLOBETASOL PROPIONATE [Concomitant]
     Route: 061

REACTIONS (1)
  - CHROMATURIA [None]
